FAERS Safety Report 17056057 (Version 1)
Quarter: 2019Q4

REPORT INFORMATION
  Report Type: Spontaneous
  Country: US (occurrence: US)
  Receive Date: 20191121
  Receipt Date: 20191121
  Transmission Date: 20200122
  Serious: Yes (Hospitalization, Other)
  Sender: FDA-Public Use
  Company Number: US-AUROBINDO-AUR-APL-2019-073336

PATIENT
  Age: 68 Year
  Sex: Female
  Weight: 60 kg

DRUGS (7)
  1. ARGATROBAN SODIUM CHLORIDE [Suspect]
     Active Substance: ARGATROBAN
     Dosage: 1 .65 ?G/KG/MIN (3600 (?G/H)
     Route: 065
     Dates: start: 20190723
  2. ARGATROBAN SODIUM CHLORIDE [Suspect]
     Active Substance: ARGATROBAN
     Dosage: 1 .4 ?G/KG/MIN (3600 (?G/H)
     Route: 065
     Dates: start: 20190723
  3. ARGATROBAN SODIUM CHLORIDE [Suspect]
     Active Substance: ARGATROBAN
     Dosage: 1 .8 ?G/KG/MIN (3600 (?G/H)
     Route: 065
     Dates: start: 20190723
  4. ARGATROBAN SODIUM CHLORIDE [Suspect]
     Active Substance: ARGATROBAN
     Dosage: 2.8 ?G/KG/MIN (3600 (?G/H)
     Route: 065
     Dates: start: 20190724
  5. ARGATROBAN SODIUM CHLORIDE [Suspect]
     Active Substance: ARGATROBAN
     Indication: HEPARIN-INDUCED THROMBOCYTOPENIA
     Dosage: 1 ?G/KG/MIN (3600 (?G/H)
     Route: 065
     Dates: start: 20190723
  6. ARGATROBAN SODIUM CHLORIDE [Suspect]
     Active Substance: ARGATROBAN
     Indication: THROMBOSIS
     Dosage: 1 .1 ?G/KG/MIN (3600 (?G/H)
     Route: 065
     Dates: start: 20190723
  7. ARGATROBAN SODIUM CHLORIDE [Suspect]
     Active Substance: ARGATROBAN
     Dosage: 2.4 ?G/KG/MIN (3600 (?G/H)
     Route: 065
     Dates: start: 20190724

REACTIONS (2)
  - Drug resistance [Unknown]
  - Coagulation factor VIII level increased [Unknown]
